FAERS Safety Report 7388366-4 (Version None)
Quarter: 2011Q2

REPORT INFORMATION
  Report Type: 
  Country: None (occurrence: None)
  Receive Date: 20110401
  Receipt Date: 20110322
  Transmission Date: 20111010
  Serious: Yes (Other)
  Sender: FDA-Public Use
  Company Number: PHFR2011GB00456

PATIENT
  Sex: Male

DRUGS (3)
  1. OLANZAPINE [Concomitant]
     Indication: SCHIZOPHRENIA, PARANOID TYPE
     Dosage: 10 MG
     Route: 048
     Dates: start: 20110131
  2. CLOZARIL [Suspect]
     Indication: SCHIZOPHRENIA, PARANOID TYPE
     Dosage: 12.5 MG, BID (150MG)
     Route: 048
     Dates: start: 20110101, end: 20110118
  3. HALOPERIDOL [Concomitant]

REACTIONS (4)
  - ARRHYTHMIA [None]
  - MYOCARDIAL ISCHAEMIA [None]
  - BUNDLE BRANCH BLOCK LEFT [None]
  - ELECTROCARDIOGRAM T WAVE ABNORMAL [None]
